FAERS Safety Report 8760625 (Version 3)
Quarter: 2013Q1

REPORT INFORMATION
  Report Type: Spontaneous
  Country: JP (occurrence: None)
  Receive Date: 20120820
  Receipt Date: 20121231
  Transmission Date: 20140127
  Serious: Yes (Hospitalization, Other)
  Sender: FDA-Public Use
  Company Number: ADR-2012-01488

PATIENT
  Age: 34 Year
  Sex: Male

DRUGS (1)
  1. GABALON [Suspect]
     Indication: SPINOCEREBELLAR DISORDER

REACTIONS (1)
  - Cholecystitis [None]
